FAERS Safety Report 17026101 (Version 1)
Quarter: 2019Q4

REPORT INFORMATION
  Report Type: Spontaneous
  Country: US (occurrence: US)
  Receive Date: 20191113
  Receipt Date: 20191113
  Transmission Date: 20200122
  Serious: No
  Sender: FDA-Public Use
  Company Number: US-GE HEALTHCARE LIFE SCIENCES-2019CSU003135

PATIENT
  Age: 30 Year
  Sex: Male

DRUGS (4)
  1. OMNIPAQUE [Suspect]
     Active Substance: IOHEXOL
     Indication: COMPUTERISED TOMOGRAM HEAD
     Dosage: UNK UNK, SINGLE
     Route: 065
     Dates: start: 20190530, end: 20190530
  2. CLOZAPINE. [Concomitant]
     Active Substance: CLOZAPINE
     Dosage: 37.5 MG, UNK
     Route: 065
  3. LEVOTHYROXINE. [Concomitant]
     Active Substance: LEVOTHYROXINE
     Dosage: 50 MG, UNK
     Route: 065
  4. OMNIPAQUE [Suspect]
     Active Substance: IOHEXOL
     Indication: SINUSITIS

REACTIONS (7)
  - Compulsive handwashing [Recovering/Resolving]
  - Hallucination [Recovering/Resolving]
  - Neurological symptom [Recovering/Resolving]
  - Agitation [Recovering/Resolving]
  - Psychiatric symptom [Recovering/Resolving]
  - Enuresis [Recovering/Resolving]
  - Libido increased [Recovering/Resolving]

NARRATIVE: CASE EVENT DATE: 20190530
